FAERS Safety Report 23981185 (Version 1)
Quarter: 2024Q2

REPORT INFORMATION
  Report Type: Spontaneous
  Country: CN (occurrence: CN)
  Receive Date: 20240617
  Receipt Date: 20240617
  Transmission Date: 20240716
  Serious: Yes (Hospitalization, Other)
  Sender: FDA-Public Use
  Company Number: CN-002147023-NVSC2024CN124186

PATIENT
  Age: 30 Year
  Sex: Male
  Weight: 89 kg

DRUGS (6)
  1. TRILEPTAL [Suspect]
     Active Substance: OXCARBAZEPINE
     Indication: Epileptic psychosis
     Dosage: 0.6 G, TID
     Route: 048
     Dates: start: 20240408, end: 20240428
  2. TRILEPTAL [Suspect]
     Active Substance: OXCARBAZEPINE
     Dosage: 0.6 G, TID
     Route: 048
     Dates: start: 20240429, end: 20240608
  3. LAMICTAL [Suspect]
     Active Substance: LAMOTRIGINE
     Indication: Epileptic psychosis
     Dosage: 50 MG, BID
     Route: 048
     Dates: start: 20240408, end: 20240608
  4. VALPROATE SODIUM [Concomitant]
     Active Substance: VALPROATE SODIUM
     Indication: Affect lability
     Dosage: 0.5 G, QD
     Route: 048
     Dates: start: 20240408, end: 20240608
  5. QUETIAPINE FUMARATE [Concomitant]
     Active Substance: QUETIAPINE FUMARATE
     Indication: Epileptic psychosis
     Dosage: 0.05 G, QD (NIGHT ANTIEPILEPTIC THERAPY)
     Route: 048
     Dates: start: 20240408, end: 20240608
  6. CLONAZEPAM [Concomitant]
     Active Substance: CLONAZEPAM
     Indication: Insomnia
     Dosage: 2 MG, QD (NIGHT, FOR SLEEP)
     Route: 048
     Dates: start: 20240408, end: 20240608

REACTIONS (13)
  - Epilepsy [Recovering/Resolving]
  - Petit mal epilepsy [Recovering/Resolving]
  - White blood cell count increased [Recovering/Resolving]
  - Lymphocyte percentage decreased [Recovering/Resolving]
  - Neutrophil percentage increased [Recovering/Resolving]
  - Monocyte count increased [Recovering/Resolving]
  - Neutrophil count increased [Recovering/Resolving]
  - Haematocrit decreased [Recovering/Resolving]
  - Mean cell haemoglobin concentration increased [Recovering/Resolving]
  - C-reactive protein increased [Recovering/Resolving]
  - Pneumonia [Recovering/Resolving]
  - Lymphocyte count increased [Recovering/Resolving]
  - Plateletcrit increased [Recovering/Resolving]

NARRATIVE: CASE EVENT DATE: 20240511
